FAERS Safety Report 17069724 (Version 3)
Quarter: 2020Q1

REPORT INFORMATION
  Report Type: Spontaneous
  Country: US (occurrence: US)
  Receive Date: 20191125
  Receipt Date: 20200117
  Transmission Date: 20200409
  Serious: No
  Sender: FDA-Public Use
  Company Number: US-BIOGEN-2019BI00806490

PATIENT
  Sex: Female

DRUGS (1)
  1. TYSABRI [Suspect]
     Active Substance: NATALIZUMAB
     Indication: MULTIPLE SCLEROSIS
     Route: 065
     Dates: start: 20190618

REACTIONS (5)
  - Emotional distress [Unknown]
  - Multiple sclerosis relapse [Unknown]
  - Migraine [Unknown]
  - Nervousness [Unknown]
  - Visual acuity reduced [Not Recovered/Not Resolved]
